FAERS Safety Report 22191764 (Version 1)
Quarter: 2023Q2

REPORT INFORMATION
  Report Type: Spontaneous
  Country: ES (occurrence: ES)
  Receive Date: 20230410
  Receipt Date: 20230410
  Transmission Date: 20230721
  Serious: Yes (Other)
  Sender: FDA-Public Use
  Company Number: None

PATIENT
  Age: 62 Year
  Sex: Male
  Weight: 76 kg

DRUGS (4)
  1. ESCITALOPRAM [Suspect]
     Active Substance: ESCITALOPRAM OXALATE
     Indication: Anxiety
     Dosage: 10 MILLIGRAM, QD, 1 PILL OF 10 MG IN THE MORNING
     Route: 048
     Dates: start: 20220316
  2. ATORVASTATIN [Concomitant]
     Active Substance: ATORVASTATIN
     Indication: Blood cholesterol increased
     Dosage: HALF PILL (15MG) AT NIGHT
     Route: 065
     Dates: start: 20210331
  3. ASPIRIN [Concomitant]
     Active Substance: ASPIRIN
     Indication: Prophylaxis
     Dosage: 100 MILLIGRAM, QD, 1 PILL IN THE MORNING
     Route: 065
     Dates: start: 20050301
  4. Collagen + magnesium [Concomitant]
     Indication: Osteoarthritis
     Dosage: UNK, 6 PILLS A DAY IN THREE DOSES
     Route: 065
     Dates: start: 20040301

REACTIONS (4)
  - Depressed level of consciousness [Not Recovered/Not Resolved]
  - Paraesthesia [Not Recovered/Not Resolved]
  - Headache [Not Recovered/Not Resolved]
  - Dizziness [Not Recovered/Not Resolved]

NARRATIVE: CASE EVENT DATE: 20230110
